FAERS Safety Report 19750900 (Version 1)
Quarter: 2021Q3

REPORT INFORMATION
  Report Type: Spontaneous
  Country: FR (occurrence: FR)
  Receive Date: 20210826
  Receipt Date: 20210826
  Transmission Date: 20211014
  Serious: Yes (Life-Threatening, Hospitalization)
  Sender: FDA-Public Use
  Company Number: FR-MYLANLABS-2021M1055314

PATIENT
  Age: 57 Year
  Sex: Male
  Weight: 75 kg

DRUGS (14)
  1. ATORVASTATINE                      /01326101/ [Concomitant]
     Active Substance: ATORVASTATIN
  2. PARACETAMOL [Concomitant]
     Active Substance: ACETAMINOPHEN
  3. ABSTRAL [Concomitant]
     Active Substance: FENTANYL CITRATE
  4. YONDELIS [Suspect]
     Active Substance: TRABECTEDIN
     Indication: MYXOID LIPOSARCOMA
     Dosage: 2.8 MILLIGRAM
     Route: 042
     Dates: start: 20210119
  5. LOVENOX [Concomitant]
     Active Substance: ENOXAPARIN SODIUM
  6. ATENOLOL. [Concomitant]
     Active Substance: ATENOLOL
  7. ACTISKENAN [Concomitant]
     Active Substance: MORPHINE SULFATE
  8. SOLUPRED                           /00016217/ [Concomitant]
     Active Substance: PREDNISOLONE SODIUM METAZOATE
  9. KARDEGIC [Concomitant]
     Active Substance: ASPIRIN DL-LYSINE
  10. ONDANSETRON [Concomitant]
     Active Substance: ONDANSETRON
  11. PANTOPRAZOLE [Concomitant]
     Active Substance: PANTOPRAZOLE
  12. GABAPENTIN. [Suspect]
     Active Substance: GABAPENTIN
     Indication: NEURALGIA
     Dosage: 500 MILLIGRAM, QD
     Route: 048
     Dates: start: 20201231, end: 20210121
  13. SKENAN [Concomitant]
     Active Substance: MORPHINE SULFATE
  14. MOVICOL [Concomitant]
     Active Substance: POLYETHYLENE GLYCOL 3350\POTASSIUM CHLORIDE\SODIUM BICARBONATE\SODIUM CHLORIDE

REACTIONS (3)
  - Hepatic cytolysis [Recovered/Resolved]
  - Sepsis [Recovered/Resolved]
  - Pancytopenia [Recovered/Resolved]

NARRATIVE: CASE EVENT DATE: 20210120
